FAERS Safety Report 8942179 (Version 2)
Quarter: 2012Q4

REPORT INFORMATION
  Report Type: 
  Country: DE (occurrence: JP)
  Receive Date: 20121202
  Receipt Date: 20121213
  Transmission Date: 20130627
  Serious: Yes (Hospitalization)
  Sender: FDA-Public Use
  Company Number: JP-BRISTOL-MYERS SQUIBB COMPANY-17160904

PATIENT
  Age: 69 Year
  Sex: Male
  Weight: 69.6 kg

DRUGS (5)
  1. ERBITUX SOLN FOR INF 5MG/ML [Suspect]
     Indication: COLORECTAL CANCER RECURRENT
     Dosage: 30Jun2011-Ong
02Nov2012-09Nov2012(7D)
     Route: 041
     Dates: start: 20110630
  2. 5-FLUOROURACIL [Suspect]
     Indication: COLORECTAL CANCER RECURRENT
     Dosage: 2Nv12-2Nv12 IV 4176mg also tkn
4176mg also taken
30Jun2011-ong
     Route: 040
     Dates: start: 20110630, end: 20121102
  3. CALCIUM FOLINATE [Suspect]
     Indication: COLORECTAL CANCER RECURRENT
     Dosage: 30Jun2011-ong
02Nov2012-02Nov2012
     Route: 041
     Dates: start: 20110630
  4. OXALIPLATIN [Suspect]
     Indication: COLORECTAL CANCER RECURRENT
     Dosage: 02Nov2012
     Route: 041
     Dates: start: 20110630
  5. MAGLAX [Concomitant]
     Indication: CONSTIPATION
     Route: 048
     Dates: start: 201106

REACTIONS (1)
  - Diverticulum intestinal haemorrhagic [Recovered/Resolved]
